FAERS Safety Report 9042038 (Version 1)
Quarter: 2013Q1

REPORT INFORMATION
  Report Type: Report from Study
  Country: US (occurrence: US)
  Receive Date: 20130129
  Receipt Date: 20130129
  Transmission Date: 20140127
  Serious: No
  Sender: FDA-Public Use
  Company Number: US-ABBOTT-12P-163-0906372-00

PATIENT
  Age: 42 Year
  Sex: Female

DRUGS (8)
  1. HUMIRA 40 MG/0.8 ML PEN [Suspect]
     Indication: CROHN^S DISEASE
     Dosage: LOADING DOSE
     Dates: start: 20120208, end: 20120208
  2. HUMIRA 40 MG/0.8 ML PEN [Suspect]
  3. LISINOPRIL [Concomitant]
     Indication: HYPERTENSION
  4. MACRODANTIN [Concomitant]
     Indication: PROPHYLAXIS
  5. MACRODANTIN [Concomitant]
     Indication: URINARY TRACT INFECTION
  6. BUDESONIDE [Concomitant]
     Indication: PRODUCT USED FOR UNKNOWN INDICATION
  7. CIPRO [Concomitant]
     Indication: CROHN^S DISEASE
  8. FLAGYL [Concomitant]
     Indication: CROHN^S DISEASE

REACTIONS (4)
  - Chills [Not Recovered/Not Resolved]
  - Pyrexia [Not Recovered/Not Resolved]
  - Headache [Not Recovered/Not Resolved]
  - Abdominal pain [Not Recovered/Not Resolved]
